FAERS Safety Report 11478405 (Version 2)
Quarter: 2015Q4

REPORT INFORMATION
  Report Type: Spontaneous
  Country: FR (occurrence: FR)
  Receive Date: 20150909
  Receipt Date: 20151016
  Transmission Date: 20160304
  Serious: Yes (Hospitalization, Other)
  Sender: FDA-Public Use
  Company Number: FR-BAXTER-2015BAX048577

PATIENT
  Age: 76 Year
  Sex: Male

DRUGS (10)
  1. MABTHERA [Suspect]
     Active Substance: RITUXIMAB
     Indication: DIFFUSE LARGE B-CELL LYMPHOMA
     Route: 042
     Dates: start: 201309
  2. VINCRISTINE HOSPIRA [Suspect]
     Active Substance: VINCRISTINE
     Dosage: 8TH COURSE
     Route: 042
     Dates: start: 201401, end: 201503
  3. PREDNISONE. [Suspect]
     Active Substance: PREDNISONE
     Dosage: 8TH COURSE
     Route: 065
     Dates: start: 201401, end: 201503
  4. ENDOXAN 1000 MG, POUDRE POUR SOLUTION INJECTABLE [Suspect]
     Active Substance: CYCLOPHOSPHAMIDE
     Dosage: 8TH COURSE
     Route: 042
     Dates: start: 201401, end: 201503
  5. ADRIBLASTINE [Suspect]
     Active Substance: DOXORUBICIN
     Indication: DIFFUSE LARGE B-CELL LYMPHOMA
     Route: 042
     Dates: start: 201309, end: 201401
  6. ENDOXAN 1000 MG, POUDRE POUR SOLUTION INJECTABLE [Suspect]
     Active Substance: CYCLOPHOSPHAMIDE
     Indication: DIFFUSE LARGE B-CELL LYMPHOMA
     Route: 042
     Dates: start: 201309, end: 201401
  7. PREDNISONE. [Suspect]
     Active Substance: PREDNISONE
     Indication: PRODUCT USED FOR UNKNOWN INDICATION
     Route: 065
     Dates: start: 201309
  8. MABTHERA [Suspect]
     Active Substance: RITUXIMAB
     Dosage: 8TH COURSE
     Route: 042
     Dates: start: 201401, end: 201503
  9. ADRIBLASTINE [Suspect]
     Active Substance: DOXORUBICIN
     Dosage: 8TH COURSE
     Route: 042
     Dates: start: 201401, end: 201503
  10. VINCRISTINE HOSPIRA [Suspect]
     Active Substance: VINCRISTINE
     Indication: DIFFUSE LARGE B-CELL LYMPHOMA
     Dosage: STRENGTH: 2MG/2ML
     Route: 042
     Dates: start: 201309, end: 201401

REACTIONS (4)
  - Left ventricular failure [Not Recovered/Not Resolved]
  - Endocardial fibrosis [Unknown]
  - Congestive cardiomyopathy [Unknown]
  - Atrial thrombosis [Unknown]

NARRATIVE: CASE EVENT DATE: 201508
